FAERS Safety Report 8234395-8 (Version None)
Quarter: 2012Q1

REPORT INFORMATION
  Report Type: 
  Country: None (occurrence: None)
  Receive Date: 20120326
  Receipt Date: 20120316
  Transmission Date: 20120608
  Serious: Yes (Hospitalization)
  Sender: FDA-Public Use
  Company Number: US-ASTRAZENECA-2011SE47486

PATIENT
  Age: 66 Year
  Sex: Male

DRUGS (11)
  1. ASPIRIN [Concomitant]
  2. STATIN [Concomitant]
  3. FIBRIC ACID [Concomitant]
  4. SAXAGLIPTIN CODE NOT BROKEN [Concomitant]
     Indication: TYPE 2 DIABETES MELLITUS
     Dates: start: 20101227, end: 20111207
  5. METFORMIN HCL [Suspect]
     Indication: DIABETES MELLITUS
     Dates: end: 20110619
  6. REPAGLINIDE [Suspect]
     Indication: DIABETES MELLITUS
  7. ANGIOTENSIN RECEPTOR BLOCKER [Concomitant]
  8. CALCIUM ANTAGONIST [Concomitant]
  9. LANTUS [Suspect]
     Indication: DIABETES MELLITUS
  10. ATACAND [Suspect]
     Route: 048
  11. LOPRESSOR [Suspect]

REACTIONS (1)
  - PRESYNCOPE [None]
